FAERS Safety Report 5725720-8 (Version None)
Quarter: 2008Q2

REPORT INFORMATION
  Report Type: 
  Country: None (occurrence: None)
  Receive Date: 20080501
  Receipt Date: 20080418
  Transmission Date: 20081010
  Serious: Yes (Life-Threatening, Hospitalization)
  Sender: FDA-Public Use
  Company Number: FR-GENENTECH-259984

PATIENT
  Age: 63 Year
  Sex: Female

DRUGS (2)
  1. AVASTIN [Suspect]
     Indication: BREAST CANCER METASTATIC
     Dates: start: 20080415
  2. TAXOL [Concomitant]
     Indication: BREAST CANCER METASTATIC
     Dates: start: 20080415

REACTIONS (1)
  - RENAL FAILURE [None]
